FAERS Safety Report 9202280 (Version 1)
Quarter: 2013Q1

REPORT INFORMATION
  Report Type: Spontaneous
  Country: US (occurrence: None)
  Receive Date: 20130329
  Receipt Date: 20130329
  Transmission Date: 20140127
  Serious: Yes (Hospitalization)
  Sender: FDA-Public Use
  Company Number: None

PATIENT
  Age: 41 Year
  Sex: Female

DRUGS (1)
  1. GAMMAGARD [Suspect]

REACTIONS (8)
  - Infusion related reaction [None]
  - Pyrexia [None]
  - Chest pain [None]
  - Headache [None]
  - Spinal pain [None]
  - Cough [None]
  - Abdominal pain [None]
  - Palpitations [None]
